FAERS Safety Report 11797872 (Version 1)
Quarter: 2015Q4

REPORT INFORMATION
  Report Type: Spontaneous
  Country: US (occurrence: None)
  Receive Date: 20151202
  Receipt Date: 20151202
  Transmission Date: 20160305
  Serious: Yes (Other)
  Sender: FDA-Public Use
  Company Number: None

PATIENT
  Age: 26 Year
  Sex: Female
  Weight: 89.36 kg

DRUGS (7)
  1. CONTRAVE [Concomitant]
     Active Substance: BUPROPION HYDROCHLORIDE\NALTREXONE HYDROCHLORIDE
  2. MINESTRINE [Concomitant]
  3. CONTRAVE [Suspect]
     Active Substance: BUPROPION HYDROCHLORIDE\NALTREXONE HYDROCHLORIDE
     Indication: ANTIDEPRESSANT THERAPY
     Dosage: INTO THE MUSCLE; 2 PILLS MORNING, 2 PILLS EVENING
     Dates: start: 20151026, end: 20151201
  4. MULTI VITAMIN [Concomitant]
     Active Substance: VITAMINS
  5. CONTRAVE [Suspect]
     Active Substance: BUPROPION HYDROCHLORIDE\NALTREXONE HYDROCHLORIDE
     Indication: WEIGHT DECREASED
     Dosage: INTO THE MUSCLE; 2 PILLS MORNING, 2 PILLS EVENING
     Dates: start: 20151026, end: 20151201
  6. EXLAX [Concomitant]
  7. STOOL SOFTENER [Concomitant]
     Active Substance: DOCUSATE CALCIUM

REACTIONS (9)
  - Constipation [None]
  - Nephrolithiasis [None]
  - Kidney infection [None]
  - Cardiac disorder [None]
  - Back pain [None]
  - Musculoskeletal chest pain [None]
  - Urinary tract infection [None]
  - Palpitations [None]
  - Chest pain [None]

NARRATIVE: CASE EVENT DATE: 20151201
